FAERS Safety Report 7562130-5 (Version None)
Quarter: 2011Q2

REPORT INFORMATION
  Report Type: 
  Country: None (occurrence: None)
  Receive Date: 20110622
  Receipt Date: 20110610
  Transmission Date: 20111010
  Serious: Yes (Hospitalization)
  Sender: FDA-Public Use
  Company Number: KR-BRISTOL-MYERS SQUIBB COMPANY-15591563

PATIENT
  Age: 29 Year
  Sex: Female

DRUGS (3)
  1. RISPERIDONE [Concomitant]
     Indication: SCHIZOPHRENIA
     Dosage: 2.5MG:24-30NV10,WK1:2.5MG:01-07DC10,WK2:2MG:08-14DC10,WK3:1MG15-21DC10,6MG PO QD
     Route: 048
     Dates: start: 20100924, end: 20101221
  2. LORAZEPAM [Concomitant]
     Indication: ANXIETY
     Route: 048
     Dates: start: 20100924, end: 20101228
  3. ARIPIPRAZOLE [Suspect]
     Indication: SCHIZOPHRENIA
     Dosage: 15MG WTHDN,WK1:24-30NV,WK2:08-14DC,WK315MG:15-21DC10,WK415MG:22-28DC10,WK5:29DC1-4JA11,10MG:1FB11
     Route: 048
     Dates: start: 20101124, end: 20110228

REACTIONS (1)
  - PSYCHOTIC DISORDER [None]
